FAERS Safety Report 9264339 (Version 2)
Quarter: 2013Q2

REPORT INFORMATION
  Report Type: Spontaneous
  Country: US (occurrence: US)
  Receive Date: 20130430
  Receipt Date: 20130531
  Transmission Date: 20140414
  Serious: Yes (Hospitalization, Other)
  Sender: FDA-Public Use
  Company Number: US-PFIZER INC-2013133289

PATIENT
  Age: 59 Year
  Sex: Female

DRUGS (4)
  1. CELEBREX [Suspect]
     Indication: ARTHRITIS
     Dosage: 200 MG, 1X/DAY
  2. CARVEDILOL [Concomitant]
     Indication: HYPERTENSION
     Dosage: UNK, 1X/DAY
  3. BUPROPION HYDROCHLORIDE [Concomitant]
     Dosage: UNK, 1X/DAY
  4. BUMETANIDE [Concomitant]
     Dosage: UNK

REACTIONS (4)
  - Arthropathy [Unknown]
  - Arthropod bite [Unknown]
  - Poisoning [Unknown]
  - Movement disorder [Unknown]
